FAERS Safety Report 13160301 (Version 1)
Quarter: 2017Q1

REPORT INFORMATION
  Report Type: Spontaneous
  Country: TH (occurrence: TH)
  Receive Date: 20170127
  Receipt Date: 20170127
  Transmission Date: 20170428
  Serious: Yes (Death, Hospitalization)
  Sender: FDA-Public Use
  Company Number: TH-BAXTER-2017BAX002661

PATIENT
  Age: 83 Year
  Sex: Male
  Weight: 60 kg

DRUGS (1)
  1. DIANEAL LOW CALCIUM PERITONEAL DIALYSIS SOLUTION WITH DEXTROSE [Suspect]
     Active Substance: CALCIUM CHLORIDE\DEXTROSE\MAGNESIUM CHLORIDE\SODIUM CHLORIDE\SODIUM LACTATE
     Indication: PERITONEAL DIALYSIS
     Route: 033
     Dates: end: 201612

REACTIONS (6)
  - Hypervolaemia [Fatal]
  - Decreased appetite [Unknown]
  - Drug ineffective [Unknown]
  - Abdominal pain upper [Unknown]
  - Hypotension [Fatal]
  - Vomiting [Unknown]

NARRATIVE: CASE EVENT DATE: 201612
